FAERS Safety Report 5409184-X (Version None)
Quarter: 2007Q3

REPORT INFORMATION
  Report Type: 
  Country: None (occurrence: None)
  Receive Date: 20070713
  Receipt Date: 20070213
  Transmission Date: 20080115
  Serious: Yes (Hospitalization)
  Sender: FDA-Public Use
  Company Number: US-JNJFOC-20050901084

PATIENT
  Age: 27 Year
  Sex: Female
  Weight: 58.514 kg

DRUGS (2)
  1. ORTHO EVRA [Suspect]
     Indication: DRUG USE FOR UNKNOWN INDICATION
     Dosage: 1 DOSE(S), 3 IN 4 WEEK, TRANSDERMAL
     Route: 062
     Dates: start: 20041001, end: 20041020
  2. FLEXERIL (CYCLOBENZAPRIINE HYDROCHLORIDE) [Concomitant]

REACTIONS (1)
  - PULMONARY EMBOLISM [None]
